FAERS Safety Report 25527129 (Version 1)
Quarter: 2025Q3

REPORT INFORMATION
  Report Type: Spontaneous
  Country: US (occurrence: US)
  Receive Date: 20250708
  Receipt Date: 20250708
  Transmission Date: 20251021
  Serious: No
  Sender: CIPLA
  Company Number: US-CIPLA LTD.-2024US10937

PATIENT

DRUGS (2)
  1. DONEPEZIL [Suspect]
     Active Substance: DONEPEZIL
     Indication: Product used for unknown indication
     Route: 065
  2. DUPIXENT [Suspect]
     Active Substance: DUPILUMAB
     Indication: Dermatitis atopic
     Route: 058

REACTIONS (3)
  - Adverse event [Recovered/Resolved]
  - Rash macular [Unknown]
  - Condition aggravated [Unknown]
